FAERS Safety Report 6809860-8 (Version None)
Quarter: 2010Q2

REPORT INFORMATION
  Report Type: 
  Country: None (occurrence: None)
  Receive Date: 20100630
  Receipt Date: 20100622
  Transmission Date: 20101027
  Serious: Yes (Other)
  Sender: FDA-Public Use
  Company Number: B0661139A

PATIENT
  Age: 30 Year
  Sex: Female

DRUGS (2)
  1. NIQUITIN CQ CLEAR [Suspect]
     Indication: SMOKING CESSATION THERAPY
     Dosage: 14MG PER DAY
     Route: 062
     Dates: start: 20100429, end: 20100514
  2. PROTOPIC [Concomitant]
     Dosage: .1PCT TWICE PER DAY

REACTIONS (6)
  - CONSTIPATION [None]
  - DIARRHOEA [None]
  - FEELING HOT [None]
  - HEADACHE [None]
  - NAUSEA [None]
  - VOMITING [None]
